FAERS Safety Report 4366473-8 (Version None)
Quarter: 2004Q2

REPORT INFORMATION
  Report Type: 
  Country: None (occurrence: None)
  Receive Date: 20040527
  Receipt Date: 20040413
  Transmission Date: 20050107
  Serious: No
  Sender: FDA-Public Use
  Company Number: US-BRISTOL-MYERS SQUIBB COMPANY-12558599

PATIENT
  Age: 6 Decade
  Sex: Male
  Weight: 91 kg

DRUGS (1)
  1. ERBITUX [Suspect]
     Dosage: 3RD DOSE NOT ADMINISTERED.

REACTIONS (1)
  - DERMATITIS ACNEIFORM [None]
